FAERS Safety Report 8887712 (Version 1)
Quarter: 2012Q4

REPORT INFORMATION
  Report Type: Spontaneous
  Country: FR (occurrence: None)
  Receive Date: 20121031
  Receipt Date: 20121031
  Transmission Date: 20130627
  Serious: Yes (Hospitalization)
  Sender: FDA-Public Use
  Company Number: DSA_60356_2012

PATIENT
  Age: 46 Year
  Sex: Female

DRUGS (4)
  1. FLAGYL [Suspect]
     Dosage: (DF)
     Dates: start: 20120906, end: 20120916
  2. CLAFORAN [Suspect]
     Dosage: (DF)
     Dates: start: 20120906, end: 20120916
  3. OFLOCET [Suspect]
     Dosage: (DF)
     Dates: start: 20120906, end: 20120916
  4. ENOXAPARIN SODIUM [Suspect]
     Route: 058
     Dates: end: 20120919

REACTIONS (1)
  - Thrombocytosis [None]
